FAERS Safety Report 13643034 (Version 1)
Quarter: 2017Q2

REPORT INFORMATION
  Report Type: Spontaneous
  Country: ZA (occurrence: ZA)
  Receive Date: 20170612
  Receipt Date: 20170612
  Transmission Date: 20170830
  Serious: Yes (Hospitalization, Other)
  Sender: FDA-Public Use
  Company Number: ZA-TEVA-776289ISR

PATIENT
  Sex: Female
  Weight: 40 kg

DRUGS (14)
  1. ISONIAZIDE [Suspect]
     Active Substance: ISONIAZID
     Indication: TUBERCULOSIS
     Dosage: 600 MILLIGRAM DAILY;
     Dates: start: 20170323
  2. DELAMANID [Suspect]
     Active Substance: DELAMANID
     Indication: TUBERCULOSIS
     Dosage: 200 MILLIGRAM DAILY;
     Route: 048
     Dates: start: 20170420
  3. 3TC [Concomitant]
     Active Substance: LAMIVUDINE
     Dates: start: 20160922
  4. LEVOFLOXACIN. [Suspect]
     Active Substance: LEVOFLOXACIN
     Indication: TUBERCULOSIS
     Dosage: 750 MILLIGRAM DAILY;
     Route: 048
     Dates: start: 20170323
  5. PYRAZINAMIDE. [Suspect]
     Active Substance: PYRAZINAMIDE
     Indication: TUBERCULOSIS
     Dosage: 1.75 GRAM DAILY;
     Dates: start: 20170323
  6. ALUVIA [Concomitant]
     Active Substance: LOPINAVIR\RITONAVIR
     Dates: start: 20160922
  7. LINEZOLID. [Suspect]
     Active Substance: LINEZOLID
     Indication: TUBERCULOSIS
     Dosage: 600 MILLIGRAM DAILY;
     Dates: start: 20170323
  8. BEDAQUILINE [Suspect]
     Active Substance: BEDAQUILINE
     Indication: TUBERCULOSIS
     Dates: start: 20170323
  9. BEDAQUILINE [Suspect]
     Active Substance: BEDAQUILINE
  10. CLOFAZIMINE [Suspect]
     Active Substance: CLOFAZIMINE
     Indication: TUBERCULOSIS
     Dosage: 100 MILLIGRAM DAILY;
     Dates: start: 20170323
  11. TERIZIDONE [Suspect]
     Active Substance: TERIZIDONE
     Indication: TUBERCULOSIS
     Dosage: 500 MILLIGRAM DAILY;
     Dates: start: 20170323
  12. PYRIDOXINE [Suspect]
     Active Substance: PYRIDOXINE
     Indication: TUBERCULOSIS
     Dosage: 150 MILLIGRAM DAILY;
     Dates: start: 20170323
  13. PARA-AMINOSALICYLIC ACID [Suspect]
     Active Substance: AMINOSALICYLIC ACID
     Indication: TUBERCULOSIS
     Dosage: 8 GRAM DAILY;
     Dates: start: 20170323
  14. AZT [Concomitant]
     Active Substance: ZIDOVUDINE
     Dates: start: 20160922

REACTIONS (7)
  - Asthenia [Unknown]
  - Gastroenteritis [Not Recovered/Not Resolved]
  - Hypotension [Not Recovered/Not Resolved]
  - Oral candidiasis [Unknown]
  - Dehydration [Unknown]
  - Hypokalaemia [Not Recovered/Not Resolved]
  - Abasia [Unknown]

NARRATIVE: CASE EVENT DATE: 20170428
